FAERS Safety Report 5210282-4 (Version None)
Quarter: 2007Q1

REPORT INFORMATION
  Report Type: 
  Country: None (occurrence: None)
  Receive Date: 20070117
  Receipt Date: 20070112
  Transmission Date: 20070707
  Serious: Yes (Life-Threatening)
  Sender: FDA-Public Use
  Company Number: US-JNJFOC-20060904520

PATIENT
  Sex: Male
  Weight: 82 kg

DRUGS (13)
  1. REOPRO [Suspect]
     Indication: MYOCARDIAL INFARCTION
  2. THIENOPYRIDINE [Suspect]
     Indication: DRUG USE FOR UNKNOWN INDICATION
  3. LOSEC [Concomitant]
     Indication: GASTROOESOPHAGEAL REFLUX DISEASE
  4. NITROGLYCERIN [Concomitant]
     Indication: CHEST PAIN
  5. MORPHINE SUL INJ [Concomitant]
     Indication: CHEST PAIN
  6. METOCLOPRAMIDE [Concomitant]
     Indication: NAUSEA
  7. VALIUM [Concomitant]
     Indication: MYOCARDIAL INFARCTION
  8. HEPARIN [Concomitant]
     Indication: ACUTE CORONARY SYNDROME
  9. GLYCERYL TRINITRATE [Concomitant]
     Indication: VASODILATION PROCEDURE
  10. METOPROLOL SUCCINATE [Concomitant]
     Indication: MYOCARDIAL INFARCTION
  11. ATROPINE [Concomitant]
     Indication: BRADYCARDIA
  12. PARACETAMOL [Concomitant]
     Indication: PERICARDITIS
  13. DOBUTAMINE HCL [Concomitant]
     Indication: HYPOTENSION

REACTIONS (1)
  - PERICARDIAL HAEMORRHAGE [None]
